FAERS Safety Report 13568704 (Version 5)
Quarter: 2019Q1

REPORT INFORMATION
  Report Type: Spontaneous
  Country: TR (occurrence: TR)
  Receive Date: 20170522
  Receipt Date: 20190206
  Transmission Date: 20190417
  Serious: Yes (Death, Other)
  Sender: FDA-Public Use
  Company Number: TR-ASTELLAS-2017US019216

PATIENT
  Age: 54 Year
  Sex: Male

DRUGS (16)
  1. MYCOPHENOLATE MOFETIL. [Suspect]
     Active Substance: MYCOPHENOLATE MOFETIL
     Indication: TRANSPLANT
     Route: 065
  2. NYSTATIN. [Concomitant]
     Active Substance: NYSTATIN
     Indication: PROPHYLAXIS
     Dosage: UNK UNK, UNKNOWN FREQ.
     Route: 048
  3. PREDNISOLONE. [Suspect]
     Active Substance: PREDNISOLONE
     Indication: TRANSPLANT
     Dosage: 1000 MG, UNKNOWN FREQ. (ON THE DAY OF SURGERY)
     Route: 065
     Dates: start: 20130823, end: 20130830
  4. PREDNISOLONE. [Suspect]
     Active Substance: PREDNISOLONE
     Dosage: 20 MG, UNKNOWN FREQ. (1 WEEK POSTOPERATIVELY)
     Route: 065
     Dates: start: 20130830, end: 2014
  5. PROGRAF [Suspect]
     Active Substance: TACROLIMUS\TACROLIMUS ANHYDROUS
     Dosage: UNK, UNKNOWN FREQ. (MAINTAINING A BLOOD LEVEL OF 2-3 NG/ML)
     Route: 065
  6. PREDNISOLONE. [Suspect]
     Active Substance: PREDNISOLONE
     Route: 065
  7. SULFADOXINE PYRIME [Concomitant]
     Active Substance: PYRIMETHAMINE\SULFADOXINE
     Indication: PNEUMOCYSTIS JIROVECII PNEUMONIA
     Dosage: UNK UNK, UNKNOWN FREQ.
     Route: 065
  8. HEPARIN [Concomitant]
     Active Substance: HEPARIN SODIUM
     Indication: PROPHYLAXIS
     Dosage: UNK UNK, UNKNOWN FREQ.
     Route: 058
  9. FENTANYL. [Concomitant]
     Active Substance: FENTANYL
     Indication: ANAESTHESIA
     Dosage: UNK UNK, UNKNOWN FREQ.
     Route: 065
  10. PREDNISOLONE. [Suspect]
     Active Substance: PREDNISOLONE
     Route: 065
  11. VALACYCLOVIR [Concomitant]
     Active Substance: VALACYCLOVIR HYDROCHLORIDE
     Indication: PROPHYLAXIS
     Dosage: UNK UNK, UNKNOWN FREQ.
     Route: 048
  12. ROCURONIUM BROMIDE. [Concomitant]
     Active Substance: ROCURONIUM BROMIDE
     Indication: ANAESTHESIA
     Dosage: UNK UNK, UNKNOWN FREQ.
     Route: 065
  13. PROGRAF [Suspect]
     Active Substance: TACROLIMUS\TACROLIMUS ANHYDROUS
     Indication: TRANSPLANT
     Dosage: 0.2 MG/KG, ONCE DAILY (BLOOD LEVELS BETWEEN 15 AND 20 NG/ML THE FIRST 3 MONTHS, TAPERED 7-10 NG/ML)
     Route: 065
     Dates: start: 2013
  14. PREDNISOLONE. [Suspect]
     Active Substance: PREDNISOLONE
     Dosage: 10 MG, ONCE DAILY (6 MONTHS POSTOPERATIVELY)
     Route: 065
     Dates: start: 2014
  15. ATG                                /00575401/ [Concomitant]
     Active Substance: LAPINE T-LYMPHOCYTE IMMUNE GLOBULIN
     Indication: TRANSPLANT
     Dosage: UNK UNK, UNKNOWN FREQ.
     Route: 065
  16. THIOPENTAL SODIUM. [Concomitant]
     Active Substance: THIOPENTAL SODIUM
     Indication: ANAESTHESIA
     Dosage: UNK UNK, UNKNOWN FREQ.
     Route: 065

REACTIONS (15)
  - Multiple organ dysfunction syndrome [Fatal]
  - Sepsis [Fatal]
  - Haemodynamic instability [Unknown]
  - Transplant rejection [Unknown]
  - Squamous cell carcinoma [Unknown]
  - Post transplant lymphoproliferative disorder [Unknown]
  - Aspergillus infection [Fatal]
  - Loss of consciousness [Unknown]
  - Product use in unapproved indication [Unknown]
  - Acute respiratory distress syndrome [Fatal]
  - Bronchopulmonary aspergillosis [Fatal]
  - Hypotension [Unknown]
  - Atrial fibrillation [Unknown]
  - Anaemia [Unknown]
  - Diffuse large B-cell lymphoma [Fatal]
